FAERS Safety Report 4349938-4 (Version None)
Quarter: 2004Q2

REPORT INFORMATION
  Report Type: 
  Country: None (occurrence: None)
  Receive Date: 20040426
  Receipt Date: 20040416
  Transmission Date: 20050107
  Serious: Yes (Hospitalization)
  Sender: FDA-Public Use
  Company Number: US-JNJFOC-20040403720

PATIENT
  Sex: Male

DRUGS (2)
  1. REMICADE [Suspect]
     Indication: RHEUMATOID ARTHRITIS
     Dosage: INTRAVENOUS  : DOSAGE RECEIVED=4 VIALS
     Route: 042
     Dates: start: 20031014, end: 20031014
  2. REMICADE [Suspect]
     Indication: RHEUMATOID ARTHRITIS
     Dosage: INTRAVENOUS  : DOSAGE RECEIVED=4 VIALS
     Route: 042
     Dates: start: 20040115, end: 20040115

REACTIONS (1)
  - PULMONARY TUBERCULOSIS [None]
